FAERS Safety Report 16570520 (Version 1)
Quarter: 2019Q3

REPORT INFORMATION
  Report Type: Report from Study
  Country: US (occurrence: US)
  Receive Date: 20190715
  Receipt Date: 20190715
  Transmission Date: 20191004
  Serious: Yes (Other)
  Sender: FDA-Public Use
  Company Number: US-ROCHE-2349520

PATIENT

DRUGS (8)
  1. ALTEPLASE. [Suspect]
     Active Substance: ALTEPLASE
     Dosage: 0.5 MG/KG OVER THE SUBSEQUENT 2 HR FOR A TOTAL DOSE OF 1.25 MG/KG OVER 3 HR
     Route: 041
  2. ASPIRIN [ACETYLSALICYLIC ACID] [Concomitant]
     Active Substance: ASPIRIN
     Route: 065
  3. DIPYRIDAMOLE. [Concomitant]
     Active Substance: DIPYRIDAMOLE
     Route: 065
  4. DEXTRAN [Concomitant]
     Active Substance: DEXTRAN
     Dosage: LOW-MOLECULAR WEIGHT DEXTRAN WAS INITIATED DURING THE CATHETERIZATION AT 50 ML/HR AND CONTINUED UNTI
     Route: 065
  5. LIDOCAINE. [Concomitant]
     Active Substance: LIDOCAINE
     Route: 042
  6. ALTEPLASE. [Suspect]
     Active Substance: ALTEPLASE
     Indication: ACUTE MYOCARDIAL INFARCTION
     Dosage: .75 MG/KG OVER THE FIRST HOUR WITH 10% GIVEN AS A BOLUS
     Route: 040
  7. HEPARIN [Concomitant]
     Active Substance: HEPARIN SODIUM
     Dosage: 5,000 U OF HEPARIN AT THE TIME OF ARTERIAL ACCESS AND AN ADDITIONAL 5,000 U JUST BEFORE PTCA IF THIS
     Route: 065
  8. DILTIAZEM. [Concomitant]
     Active Substance: DILTIAZEM
     Route: 065

REACTIONS (6)
  - Upper gastrointestinal haemorrhage [Unknown]
  - Myocardial infarction [Unknown]
  - Haematoma [Unknown]
  - Postinfarction angina [Unknown]
  - Coronary artery reocclusion [Unknown]
  - Myocardial ischaemia [Unknown]
